FAERS Safety Report 19757255 (Version 1)
Quarter: 2021Q3

REPORT INFORMATION
  Report Type: Spontaneous
  Country: IT (occurrence: IT)
  Receive Date: 20210828
  Receipt Date: 20210828
  Transmission Date: 20211014
  Serious: Yes (Other)
  Sender: FDA-Public Use
  Company Number: IT-AMGEN-ITASP2021131008

PATIENT
  Age: 43 Year
  Sex: Female
  Weight: 77 kg

DRUGS (5)
  1. TRASTUZUMAB. [Concomitant]
     Active Substance: TRASTUZUMAB
     Dosage: 6 MILLIGRAM
     Route: 042
     Dates: start: 20190828, end: 20210818
  2. PERJETA [Concomitant]
     Active Substance: PERTUZUMAB
     Indication: BREAST CANCER FEMALE
     Dosage: 420 MILLIGRAM
     Route: 042
     Dates: start: 20190828, end: 20210818
  3. DECAPEPTYL [Concomitant]
     Indication: BREAST CANCER FEMALE
     Dosage: UNK
  4. LETROZOLE. [Concomitant]
     Active Substance: LETROZOLE
     Indication: BREAST CANCER FEMALE
     Dosage: UNK
     Route: 048
  5. XGEVA [Suspect]
     Active Substance: DENOSUMAB
     Indication: PATHOLOGICAL FRACTURE PROPHYLAXIS
     Dosage: 120 MILLIGRAM
     Route: 058
     Dates: start: 20200207, end: 20210603

REACTIONS (1)
  - Toothache [Recovered/Resolved with Sequelae]

NARRATIVE: CASE EVENT DATE: 20210603
